FAERS Safety Report 5841102-2 (Version None)
Quarter: 2008Q3

REPORT INFORMATION
  Report Type: 
  Country: None (occurrence: None)
  Receive Date: 20080812
  Receipt Date: 20080805
  Transmission Date: 20090109
  Serious: Yes (Death)
  Sender: FDA-Public Use
  Company Number: US-RANBAXY-2008RR-16989

PATIENT

DRUGS (7)
  1. CEFAZOLIN [Suspect]
     Dosage: 1 G, BID
  2. CEFEPIME [Suspect]
     Indication: PNEUMONIA
     Dosage: 2 G, BID
     Route: 042
  3. CEFOXITIN [Suspect]
     Indication: PROPHYLAXIS
     Dosage: 1 G, UNK
  4. VANCOMYCIN HCL [Concomitant]
     Indication: PNEUMONIA
  5. METRONIDAZOLE HCL [Concomitant]
  6. IMIPENEM [Concomitant]
  7. TIGECYCLINE [Concomitant]

REACTIONS (1)
  - LEUKOPENIA [None]
